FAERS Safety Report 11822268 (Version 2)
Quarter: 2015Q4

REPORT INFORMATION
  Report Type: Spontaneous
  Country: US (occurrence: US)
  Receive Date: 20151210
  Receipt Date: 20151217
  Transmission Date: 20160305
  Serious: No
  Sender: FDA-Public Use
  Company Number: US-LUNDBECK-DKLU2006770

PATIENT
  Age: 26 Year
  Sex: Male
  Weight: 73 kg

DRUGS (1)
  1. ONFI [Suspect]
     Active Substance: CLOBAZAM
     Indication: PRODUCT USED FOR UNKNOWN INDICATION
     Route: 065
     Dates: start: 20150403

REACTIONS (3)
  - Irritability [Recovered/Resolved]
  - Somnolence [Recovered/Resolved]
  - Soliloquy [Recovered/Resolved]

NARRATIVE: CASE EVENT DATE: 201504
